FAERS Safety Report 13750971 (Version 1)
Quarter: 2017Q3

REPORT INFORMATION
  Report Type: Spontaneous
  Country: RU (occurrence: RU)
  Receive Date: 20170713
  Receipt Date: 20170713
  Transmission Date: 20171127
  Serious: Yes (Death)
  Sender: FDA-Public Use
  Company Number: RU-SA-2017SA123993

PATIENT
  Age: 66 Year
  Sex: Female
  Weight: 41 kg

DRUGS (1)
  1. CAPRELSA [Suspect]
     Active Substance: VANDETANIB
     Indication: MEDULLARY THYROID CANCER
     Route: 048
     Dates: start: 2016

REACTIONS (3)
  - Coma [Fatal]
  - Brain oedema [Fatal]
  - Hydrocephalus [Fatal]
